FAERS Safety Report 21634705 (Version 1)
Quarter: 2022Q4

REPORT INFORMATION
  Report Type: Spontaneous
  Country: PL (occurrence: None)
  Receive Date: 20221123
  Receipt Date: 20221123
  Transmission Date: 20230112
  Serious: Yes (Other)
  Sender: FDA-Public Use
  Company Number: 2022A332761

PATIENT
  Age: 44 Year
  Sex: Male

DRUGS (1)
  1. SYMBICORT [Suspect]
     Active Substance: BUDESONIDE\FORMOTEROL FUMARATE DIHYDRATE
     Dosage: 320 UNKNOWN
     Route: 055
     Dates: start: 2016, end: 201904

REACTIONS (21)
  - Spinal pain [Unknown]
  - Epilepsy [Unknown]
  - Peripheral swelling [Unknown]
  - Pain [Unknown]
  - Limb discomfort [Unknown]
  - Hypokinesia [Unknown]
  - Dysuria [Unknown]
  - Laboratory test abnormal [Unknown]
  - Hepatic function abnormal [Unknown]
  - Metabolic disorder [Unknown]
  - Blood glucose increased [Unknown]
  - General physical health deterioration [Unknown]
  - Neck pain [Unknown]
  - Dysstasia [Unknown]
  - Hypophagia [Unknown]
  - Weight increased [Not Recovered/Not Resolved]
  - Swelling [Unknown]
  - Malaise [Unknown]
  - Hunger [Unknown]
  - Poor quality sleep [Unknown]
  - Intentional dose omission [Unknown]
